FAERS Safety Report 25611136 (Version 2)
Quarter: 2025Q3

REPORT INFORMATION
  Report Type: Spontaneous
  Country: US (occurrence: US)
  Receive Date: 20250728
  Receipt Date: 20250806
  Transmission Date: 20251021
  Serious: Yes (Other)
  Sender: AUROBINDO
  Company Number: US-MLMSERVICE-20250709-PI570765-00246-2

PATIENT
  Age: 45 Year
  Sex: Female

DRUGS (3)
  1. OLANZAPINE [Suspect]
     Active Substance: OLANZAPINE
     Indication: Psychotic disorder
     Route: 065
  2. TROSPIUM CHLORIDE\XANOMELINE [Suspect]
     Active Substance: TROSPIUM CHLORIDE\XANOMELINE
     Indication: Schizophrenia
     Dosage: UNK, TWO TIMES A DAY
     Route: 065
  3. TROSPIUM CHLORIDE\XANOMELINE [Suspect]
     Active Substance: TROSPIUM CHLORIDE\XANOMELINE
     Route: 065

REACTIONS (8)
  - Urinary retention [Recovering/Resolving]
  - Increased appetite [Unknown]
  - Tremor [Unknown]
  - Memory impairment [Unknown]
  - Constipation [Recovering/Resolving]
  - Gastrooesophageal reflux disease [Recovering/Resolving]
  - Condition aggravated [Unknown]
  - Drug interaction [Unknown]
